FAERS Safety Report 15893323 (Version 1)
Quarter: 2019Q1

REPORT INFORMATION
  Report Type: Report from Study
  Country: US (occurrence: US)
  Receive Date: 20190130
  Receipt Date: 20190130
  Transmission Date: 20190417
  Serious: No
  Sender: FDA-Public Use
  Company Number: US-EXELIXIS-CABO-18015353

PATIENT
  Sex: Male

DRUGS (2)
  1. CABOMETYX [Suspect]
     Active Substance: CABOZANTINIB S-MALATE
     Indication: RENAL CANCER
     Dosage: 40 MG, UNK
     Dates: start: 201807, end: 20180822
  2. CABOMETYX [Suspect]
     Active Substance: CABOZANTINIB S-MALATE
     Dosage: UNK
     Dates: start: 2018, end: 20181007

REACTIONS (5)
  - Diarrhoea haemorrhagic [Unknown]
  - Hypertension [Unknown]
  - Rash macular [Unknown]
  - Fatigue [Unknown]
  - Skin fissures [Unknown]

NARRATIVE: CASE EVENT DATE: 2018
